FAERS Safety Report 8554357-0 (Version None)
Quarter: 2012Q3

REPORT INFORMATION
  Report Type: 
  Country: None (occurrence: None)
  Receive Date: 20120731
  Receipt Date: 20120723
  Transmission Date: 20120928
  Serious: Yes (Other)
  Sender: FDA-Public Use
  Company Number: US-009507513-1207USA010363

PATIENT

DRUGS (12)
  1. IMODIUM [Suspect]
     Dosage: UNK, PRN
  2. NEXIUM [Concomitant]
     Dosage: 20 MG, QD
  3. ZESTORETIC [Concomitant]
     Dosage: 1 DF, BID
  4. ALLOPURINOL [Concomitant]
     Dosage: 300 MG, QD
  5. ZOCOR [Suspect]
     Dosage: UNK UNK, QD
     Route: 048
  6. CELEXA [Concomitant]
     Dosage: 0.5 DF, QD
  7. ADALAT [Concomitant]
     Dosage: 30 MG, QD
  8. TOPROL-XL [Concomitant]
     Dosage: 1 DF, UNK
  9. LIPITOR [Suspect]
     Dosage: 80 MG, QD
  10. GLUCOVANCE [Concomitant]
     Dosage: 2 DF, BID
  11. ORIGIN CO Q-10 [Concomitant]
  12. JANUVIA [Concomitant]
     Dosage: 200 MG, QD

REACTIONS (9)
  - BLOOD CHOLESTEROL [None]
  - ASTHENIA [None]
  - MYALGIA [None]
  - LOW DENSITY LIPOPROTEIN INCREASED [None]
  - RENAL IMPAIRMENT [None]
  - MUSCULAR WEAKNESS [None]
  - BLOOD TRIGLYCERIDES INCREASED [None]
  - VASCULAR INSUFFICIENCY [None]
  - DRUG INTOLERANCE [None]
